FAERS Safety Report 16592235 (Version 1)
Quarter: 2019Q3

REPORT INFORMATION
  Report Type: Spontaneous
  Country: SE (occurrence: SE)
  Receive Date: 20190718
  Receipt Date: 20190718
  Transmission Date: 20191004
  Serious: Yes (Other)
  Sender: FDA-Public Use
  Company Number: SE-ROCHE-2358618

PATIENT
  Age: 36 Year
  Sex: Female

DRUGS (1)
  1. MABTHERA [Suspect]
     Active Substance: RITUXIMAB
     Indication: PRODUCT USED FOR UNKNOWN INDICATION
     Route: 065
     Dates: start: 20130320, end: 20180829

REACTIONS (1)
  - Cervix carcinoma stage II [Recovering/Resolving]

NARRATIVE: CASE EVENT DATE: 20180829
